FAERS Safety Report 22351523 (Version 1)
Quarter: 2023Q2

REPORT INFORMATION
  Report Type: Spontaneous
  Country: US (occurrence: None)
  Receive Date: 20230522
  Receipt Date: 20230522
  Transmission Date: 20230722
  Serious: Yes (Death)
  Sender: FDA-Public Use
  Company Number: None

PATIENT
  Age: 78 Year
  Sex: Female

DRUGS (1)
  1. CAPECITABINE [Suspect]
     Active Substance: CAPECITABINE
     Indication: Breast cancer female
     Dosage: OTHER QUANTITY : 1T;?FREQUENCY : 3 TIMES A DAY;?OTHER ROUTE : POYDON7DOFF;?
     Route: 050

REACTIONS (2)
  - Breast cancer metastatic [None]
  - Death [None]

NARRATIVE: CASE EVENT DATE: 20230520
